FAERS Safety Report 10675672 (Version 1)
Quarter: 2014Q4

REPORT INFORMATION
  Report Type: Spontaneous
  Country: US (occurrence: US)
  Receive Date: 20141224
  Receipt Date: 20141224
  Transmission Date: 20150529
  Serious: Yes (Other)
  Sender: FDA-Public Use
  Company Number: US-ACTAVIS-2014-27261

PATIENT
  Age: 26 Year
  Sex: Female

DRUGS (2)
  1. TRIAMCINOLONE ACETONIDE (AMALLC) [Suspect]
     Active Substance: TRIAMCINOLONE ACETONIDE
     Indication: DERMATITIS
     Dosage: UNK
     Route: 061
  2. DESONIDE (AMALLC) [Suspect]
     Active Substance: DESONIDE
     Indication: SKIN TEST
     Dosage: UNK
     Route: 065

REACTIONS (2)
  - Erythema multiforme [Recovering/Resolving]
  - Cross sensitivity reaction [Unknown]
